FAERS Safety Report 6044378-4 (Version None)
Quarter: 2009Q1

REPORT INFORMATION
  Report Type: 
  Country: None (occurrence: None)
  Receive Date: 20090115
  Receipt Date: 20090115
  Transmission Date: 20090719
  Serious: Yes (Hospitalization)
  Sender: FDA-Public Use
  Company Number: None

PATIENT
  Sex: Female
  Weight: 43.64 kg

DRUGS (2)
  1. CARBOPLATIN [Suspect]
     Dosage: 544 MG
     Dates: end: 20081230
  2. TAXOL [Suspect]
     Dosage: 257 MG
     Dates: end: 20081230

REACTIONS (4)
  - BACK PAIN [None]
  - BODY TEMPERATURE INCREASED [None]
  - CHEST PAIN [None]
  - FATIGUE [None]
